FAERS Safety Report 6185038-9 (Version None)
Quarter: 2009Q2

REPORT INFORMATION
  Report Type: 
  Country: None (occurrence: None)
  Receive Date: 20090511
  Receipt Date: 20090429
  Transmission Date: 20091009
  Serious: Yes (Other)
  Sender: FDA-Public Use
  Company Number: US-RANBAXY-2009US-22998

PATIENT

DRUGS (4)
  1. ISOTRETINOIN [Suspect]
     Indication: DRUG USE FOR UNKNOWN INDICATION
     Dosage: 40 MG, UNK
     Route: 048
  2. CLARAVIS [Suspect]
     Indication: DRUG USE FOR UNKNOWN INDICATION
     Dosage: 10 MG, UNK
     Route: 048
  3. CLARAVIS [Suspect]
     Dosage: 20 MG, UNK
     Route: 048
  4. CLARAVIS [Suspect]
     Dosage: 40 MG, UNK
     Route: 048

REACTIONS (1)
  - WHITE BLOOD CELL COUNT ABNORMAL [None]
